FAERS Safety Report 23733210 (Version 3)
Quarter: 2024Q2

REPORT INFORMATION
  Report Type: Spontaneous
  Country: IN (occurrence: IN)
  Receive Date: 20240411
  Receipt Date: 20240625
  Transmission Date: 20240716
  Serious: Yes (Other)
  Sender: FDA-Public Use
  Company Number: IN-PFIZER INC-PV202400033265

PATIENT
  Age: 62 Year
  Sex: Female
  Weight: 55.4 kg

DRUGS (7)
  1. PALBOCICLIB [Suspect]
     Active Substance: PALBOCICLIB
     Indication: Breast cancer metastatic
     Dosage: 125 MG, CYCLIC: DAILY, DAY 1 TO DAY 21 THEN 7 DAYS GAP
     Route: 048
     Dates: start: 202403
  2. LETROZOLE [Concomitant]
     Active Substance: LETROZOLE
     Dosage: 2.5 MG, 1X/DAY
  3. CALCIUM\CHOLECALCIFEROL [Concomitant]
     Active Substance: CALCIUM\CHOLECALCIFEROL
     Dosage: 1 TABLET, QD
  4. PYRIGESIC [Concomitant]
     Indication: Pain
     Dosage: 1GM TDS/SOS
  5. FOLVITE [FOLATE SODIUM] [Concomitant]
     Dosage: 5 MG, QD
  6. CYPON [Concomitant]
     Dosage: 2 TSF BDAC
  7. DENOSUMAB [Concomitant]
     Active Substance: DENOSUMAB
     Dosage: 120 MG
     Route: 058
     Dates: start: 20240410, end: 20240410

REACTIONS (2)
  - Blood pressure increased [Not Recovered/Not Resolved]
  - Haemoglobin decreased [Not Recovered/Not Resolved]
